FAERS Safety Report 22186597 (Version 1)
Quarter: 2023Q2

REPORT INFORMATION
  Report Type: Report from Study
  Country: GB (occurrence: GB)
  Receive Date: 20230407
  Receipt Date: 20230407
  Transmission Date: 20230721
  Serious: Yes (Other)
  Sender: FDA-Public Use
  Company Number: GB-TEVA-2023-GB-2874447

PATIENT
  Sex: Female

DRUGS (1)
  1. COPAXONE [Suspect]
     Active Substance: GLATIRAMER ACETATE
     Indication: Multiple sclerosis
     Route: 058
     Dates: start: 20221109

REACTIONS (6)
  - Wrist fracture [Unknown]
  - Loss of consciousness [Unknown]
  - Illness [Unknown]
  - Vomiting [Unknown]
  - Injection site reaction [Unknown]
  - Injection site pruritus [Unknown]

NARRATIVE: CASE EVENT DATE: 20230301
